FAERS Safety Report 9038208 (Version 1)
Quarter: 2013Q1

REPORT INFORMATION
  Report Type: Spontaneous
  Country: US (occurrence: US)
  Receive Date: 20130129
  Receipt Date: 20130129
  Transmission Date: 20140127
  Serious: No
  Sender: FDA-Public Use
  Company Number: US-GLAXOSMITHKLINE-A0983398A

PATIENT
  Sex: Male

DRUGS (2)
  1. WELLBUTRIN [Suspect]
     Indication: EX-TOBACCO USER
  2. WELLBUTRIN [Suspect]
     Indication: EX-TOBACCO USER

REACTIONS (4)
  - Depression [Unknown]
  - Weight decreased [Unknown]
  - Ex-tobacco user [Unknown]
  - Drug ineffective [Unknown]
